FAERS Safety Report 15926078 (Version 2)
Quarter: 2019Q1

REPORT INFORMATION
  Report Type: Spontaneous
  Country: US (occurrence: US)
  Receive Date: 20190205
  Receipt Date: 20190219
  Transmission Date: 20190417
  Serious: No
  Sender: FDA-Public Use
  Company Number: US-ALLERGAN-1842106US

PATIENT
  Age: 35 Year
  Sex: Female

DRUGS (1)
  1. BOTOX [Suspect]
     Active Substance: ONABOTULINUMTOXINA
     Indication: MIGRAINE
     Dosage: 140 UNITS, SINGLE
     Route: 030
     Dates: start: 20170915, end: 20170915

REACTIONS (10)
  - Injection site pain [Not Recovered/Not Resolved]
  - Slipping rib syndrome [Unknown]
  - Paraesthesia [Not Recovered/Not Resolved]
  - Joint dislocation [Unknown]
  - Burning sensation [Unknown]
  - Muscular weakness [Not Recovered/Not Resolved]
  - Neuralgia [Unknown]
  - Dyspnoea [Not Recovered/Not Resolved]
  - Photophobia [Not Recovered/Not Resolved]
  - Disability [Not Recovered/Not Resolved]

NARRATIVE: CASE EVENT DATE: 20170915
